FAERS Safety Report 9157370 (Version 2)
Quarter: 2013Q2

REPORT INFORMATION
  Report Type: Spontaneous
  Country: US (occurrence: US)
  Receive Date: 20130312
  Receipt Date: 20130503
  Transmission Date: 20140414
  Serious: No
  Sender: FDA-Public Use
  Company Number: US-PFIZER INC-2013080164

PATIENT
  Age: 76 Year
  Sex: Female
  Weight: 56.7 kg

DRUGS (1)
  1. PREMARIN [Suspect]
     Dosage: UNK
     Route: 067

REACTIONS (2)
  - Product quality issue [Unknown]
  - Vulvovaginal discomfort [Unknown]
